FAERS Safety Report 5284839-9 (Version None)
Quarter: 2007Q1

REPORT INFORMATION
  Report Type: 
  Country: None (occurrence: None)
  Receive Date: 20070328
  Receipt Date: 20070312
  Transmission Date: 20070707
  Serious: Yes (Other)
  Sender: FDA-Public Use
  Company Number: 2007BL000886

PATIENT
  Sex: 0

DRUGS (1)
  1. GENTAMICIN SULFATE [Suspect]
     Indication: DRUG USE FOR UNKNOWN INDICATION
     Dosage: OPHTHALMIC
     Route: 047

REACTIONS (9)
  - INCORRECT ROUTE OF DRUG ADMINISTRATION [None]
  - INTRAOCULAR PRESSURE INCREASED [None]
  - OPTIC ATROPHY [None]
  - RETINAL VASCULAR DISORDER [None]
  - RETINOPATHY [None]
  - SCLERAL DISORDER [None]
  - STAPHYLOMA [None]
  - VISUAL ACUITY REDUCED [None]
  - WRONG DRUG ADMINISTERED [None]
